FAERS Safety Report 11051835 (Version 1)
Quarter: 2015Q2

REPORT INFORMATION
  Report Type: Spontaneous
  Country: US (occurrence: None)
  Receive Date: 20150420
  Receipt Date: 20150420
  Transmission Date: 20150821
  Serious: No
  Sender: FDA-Public Use
  Company Number: None

PATIENT
  Age: 63 Year
  Sex: Female
  Weight: 79.38 kg

DRUGS (15)
  1. CELECOXIB. [Suspect]
     Active Substance: CELECOXIB
     Indication: OSTEOARTHRITIS
     Route: 048
     Dates: start: 20141212, end: 20150415
  2. FEXOFENEDINE [Concomitant]
  3. ST. JOSEPH^S ASPIRIN [Concomitant]
  4. COQ10 [Concomitant]
     Active Substance: UBIDECARENONE
  5. LEVOTHYROXIN [Concomitant]
     Active Substance: LEVOTHYROXINE
  6. MG [Concomitant]
     Active Substance: MAGNESIUM
  7. VITAMIN B [Concomitant]
     Active Substance: VITAMIN B
  8. VITAMIN C [Concomitant]
     Active Substance: ASCORBIC ACID
  9. CA [Concomitant]
  10. QCUVITE ADULT 50+ [Concomitant]
  11. CELEBREX [Concomitant]
     Active Substance: CELECOXIB
  12. VITAMIN D3 [Concomitant]
     Active Substance: CHOLECALCIFEROL
  13. AVAPRO [Concomitant]
     Active Substance: IRBESARTAN
  14. ZOLOFT [Concomitant]
     Active Substance: SERTRALINE HYDROCHLORIDE
  15. PRAVASTATIN [Concomitant]
     Active Substance: PRAVASTATIN\PRAVASTATIN SODIUM

REACTIONS (4)
  - Product substitution issue [None]
  - Disease recurrence [None]
  - Discomfort [None]
  - Gastrooesophageal reflux disease [None]

NARRATIVE: CASE EVENT DATE: 20150131
